FAERS Safety Report 19931324 (Version 2)
Quarter: 2021Q4

REPORT INFORMATION
  Report Type: Spontaneous
  Country: DE (occurrence: DE)
  Receive Date: 20211007
  Receipt Date: 20211029
  Transmission Date: 20220303
  Serious: Yes (Hospitalization, Other)
  Sender: FDA-Public Use
  Company Number: DE-INSUD PHARMA-2109DE02153

PATIENT

DRUGS (2)
  1. NUVESSA [Suspect]
     Active Substance: METRONIDAZOLE
     Indication: Periodontal disease
     Dosage: UNKNOWN
     Route: 065
     Dates: start: 20201023
  2. AMOXICILLIN [Suspect]
     Active Substance: AMOXICILLIN
     Indication: Periodontal disease
     Dosage: UNKNOWN
     Route: 065
     Dates: start: 20201023

REACTIONS (8)
  - Toxic epidermal necrolysis [Recovered/Resolved]
  - Macule [Recovered/Resolved]
  - Blister [Recovered/Resolved]
  - Pruritus [Recovered/Resolved]
  - Mouth haemorrhage [Recovered/Resolved]
  - Nikolsky^s sign [Recovered/Resolved]
  - Neutrophilia [Recovered/Resolved]
  - Lymphopenia [Recovered/Resolved]

NARRATIVE: CASE EVENT DATE: 20201031
